FAERS Safety Report 9345708 (Version 1)
Quarter: 2013Q2

REPORT INFORMATION
  Report Type: Spontaneous
  Country: US (occurrence: US)
  Receive Date: 20130613
  Receipt Date: 20130613
  Transmission Date: 20140414
  Serious: No
  Sender: FDA-Public Use
  Company Number: US-PFIZER INC-2013174395

PATIENT
  Sex: Male

DRUGS (1)
  1. TOVIAZ [Suspect]
     Dosage: 8 MG, 2X/DAY
     Dates: start: 20130608

REACTIONS (3)
  - Incorrect dose administered [Unknown]
  - Micturition disorder [Unknown]
  - Drug ineffective [Unknown]
